FAERS Safety Report 13248696 (Version 1)
Quarter: 2017Q1

REPORT INFORMATION
  Report Type: Spontaneous
  Country: US (occurrence: US)
  Receive Date: 20170218
  Receipt Date: 20170218
  Transmission Date: 20170428
  Serious: No
  Sender: FDA-Public Use
  Company Number: US-ALLERGAN-1601326US

PATIENT
  Sex: Female

DRUGS (1)
  1. RESTASIS [Suspect]
     Active Substance: CYCLOSPORINE
     Indication: PRODUCT USED FOR UNKNOWN INDICATION
     Dosage: 2 GTT, TID
     Route: 047
     Dates: start: 201511

REACTIONS (8)
  - Eye pain [Unknown]
  - Inappropriate schedule of drug administration [Unknown]
  - Lacrimation increased [Unknown]
  - Vision blurred [Unknown]
  - Incorrect product storage [Unknown]
  - Ocular hyperaemia [Unknown]
  - Eye discharge [Unknown]
  - Foreign body sensation in eyes [Unknown]
